FAERS Safety Report 21532562 (Version 1)
Quarter: 2022Q4

REPORT INFORMATION
  Report Type: Spontaneous
  Country: US (occurrence: None)
  Receive Date: 20221101
  Receipt Date: 20221101
  Transmission Date: 20230113
  Serious: No
  Sender: FDA-Public Use
  Company Number: US-Unichem Pharmaceuticals (USA) Inc-UCM202201-000059

PATIENT
  Age: 83 Year
  Sex: Male
  Weight: 68.04 kg

DRUGS (1)
  1. LAMOTRIGINE [Suspect]
     Active Substance: LAMOTRIGINE
     Indication: Partial seizures
     Dosage: UNKNOWN
     Dates: start: 20210802

REACTIONS (2)
  - Dizziness [Unknown]
  - Drug ineffective [Unknown]
